FAERS Safety Report 25607818 (Version 2)
Quarter: 2025Q3

REPORT INFORMATION
  Report Type: Report from Study
  Country: BR (occurrence: BR)
  Receive Date: 20250725
  Receipt Date: 20250807
  Transmission Date: 20251020
  Serious: Yes (Death)
  Sender: GLAXOSMITHKLINE
  Company Number: BR-GSK-BR2025AMR095034

PATIENT

DRUGS (1)
  1. MOMELOTINIB [Suspect]
     Active Substance: MOMELOTINIB
     Indication: Primary myelofibrosis

REACTIONS (1)
  - Disease progression [Fatal]
